FAERS Safety Report 5453894-5 (Version None)
Quarter: 2007Q3

REPORT INFORMATION
  Report Type: 
  Country: None (occurrence: None)
  Receive Date: 20070917
  Receipt Date: 20070907
  Transmission Date: 20080115
  Serious: Yes (Other)
  Sender: FDA-Public Use
  Company Number: B0487252A

PATIENT
  Sex: Male

DRUGS (4)
  1. TELZIR [Suspect]
     Indication: HIV INFECTION
     Route: 065
  2. VIREAD [Concomitant]
     Indication: HIV INFECTION
     Route: 065
  3. EMTRIVA [Concomitant]
     Indication: HIV INFECTION
     Route: 065
  4. TRUVADA [Concomitant]
     Indication: HIV INFECTION
     Route: 065

REACTIONS (1)
  - ENCEPHALITIS [None]
